FAERS Safety Report 13953470 (Version 1)
Quarter: 2017Q3

REPORT INFORMATION
  Report Type: Spontaneous
  Country: US (occurrence: None)
  Receive Date: 20170908
  Receipt Date: 20170908
  Transmission Date: 20171128
  Serious: Yes (Other)
  Sender: FDA-Public Use
  Company Number: None

PATIENT
  Age: 68 Year
  Sex: Male

DRUGS (1)
  1. EMPAGLIFLOZIN [Suspect]
     Active Substance: EMPAGLIFLOZIN
     Indication: DIABETES MELLITUS
     Dosage: MG EVERY DAY PO
     Route: 048
     Dates: start: 20170324, end: 20170810

REACTIONS (2)
  - Genital infection fungal [None]
  - Urine odour abnormal [None]

NARRATIVE: CASE EVENT DATE: 20170810
